FAERS Safety Report 4538762-5 (Version None)
Quarter: 2004Q4

REPORT INFORMATION
  Report Type: 
  Country: None (occurrence: None)
  Receive Date: 20041222
  Receipt Date: 20041213
  Transmission Date: 20050328
  Serious: Yes (Hospitalization)
  Sender: FDA-Public Use
  Company Number: 235809K04USA

PATIENT
  Age: 56 Year
  Sex: Female

DRUGS (5)
  1. REBIF [Suspect]
     Indication: MULTIPLE SCLEROSIS
     Dosage: SEE IMAGE
     Route: 058
     Dates: start: 20040615, end: 20041101
  2. REBIF [Suspect]
     Indication: MULTIPLE SCLEROSIS
     Dosage: SEE IMAGE
     Route: 058
     Dates: start: 20041203
  3. INDERAL [Concomitant]
  4. CLONAZEPAM [Concomitant]
  5. FIORICET (AXOTAL) [Concomitant]

REACTIONS (10)
  - ABNORMAL BEHAVIOUR [None]
  - ANGER [None]
  - ANXIETY [None]
  - CAROTID ARTERY OCCLUSION [None]
  - ISCHAEMIC STROKE [None]
  - LABORATORY TEST ABNORMAL [None]
  - LIVER FUNCTION TEST ABNORMAL [None]
  - PLATELET DISORDER [None]
  - RED BLOOD CELL COUNT ABNORMAL [None]
  - WHITE BLOOD CELL COUNT ABNORMAL [None]
